FAERS Safety Report 4909474-0 (Version None)
Quarter: 2006Q1

REPORT INFORMATION
  Report Type: 
  Country: None (occurrence: None)
  Receive Date: 20060213
  Receipt Date: 20051118
  Transmission Date: 20060701
  Serious: Yes (Hospitalization, Disabling)
  Sender: FDA-Public Use
  Company Number: US-MERCK-0511USA03482

PATIENT
  Age: 51 Year
  Sex: Male
  Weight: 95 kg

DRUGS (9)
  1. VIOXX [Suspect]
     Indication: BACK PAIN
     Route: 048
     Dates: start: 19990101
  2. VIOXX [Suspect]
     Route: 048
     Dates: start: 20040415, end: 20041005
  3. VIOXX [Suspect]
     Route: 048
  4. VIOXX [Suspect]
     Route: 048
     Dates: end: 20030101
  5. VIOXX [Suspect]
     Indication: ARTHRALGIA
     Route: 048
     Dates: start: 19990101
  6. VIOXX [Suspect]
     Route: 048
     Dates: start: 20040415, end: 20041005
  7. VIOXX [Suspect]
     Route: 048
  8. VIOXX [Suspect]
     Route: 048
     Dates: end: 20030101
  9. ADVIL [Concomitant]
     Route: 065

REACTIONS (17)
  - ANIMAL BITE [None]
  - ARTERIAL OCCLUSIVE DISEASE [None]
  - BASAL CELL CARCINOMA [None]
  - BRONCHITIS [None]
  - CHEST DISCOMFORT [None]
  - CONJUNCTIVITIS [None]
  - CORONARY ARTERY DISEASE [None]
  - CORONARY ARTERY STENOSIS [None]
  - ERECTILE DYSFUNCTION [None]
  - HERPES ZOSTER [None]
  - HYPERLIPIDAEMIA [None]
  - HYPERTENSION [None]
  - MONARTHRITIS [None]
  - OSTEOARTHRITIS [None]
  - SLEEP APNOEA SYNDROME [None]
  - TESTICULAR PAIN [None]
  - URINARY TRACT INFECTION [None]
